FAERS Safety Report 15806700 (Version 1)
Quarter: 2019Q1

REPORT INFORMATION
  Report Type: Spontaneous
  Country: US (occurrence: US)
  Receive Date: 20190110
  Receipt Date: 20190110
  Transmission Date: 20190417
  Serious: No
  Sender: FDA-Public Use
  Company Number: US-BAYER-2019-007950

PATIENT
  Age: 62 Year
  Sex: Male

DRUGS (1)
  1. ADEMPAS [Suspect]
     Active Substance: RIOCIGUAT
     Indication: PULMONARY ARTERIAL HYPERTENSION
     Dosage: UNK
     Dates: start: 201812

REACTIONS (5)
  - Palpitations [None]
  - Cough [None]
  - Chest pain [None]
  - Hypotension [None]
  - Sneezing [None]

NARRATIVE: CASE EVENT DATE: 201901
